FAERS Safety Report 5306968-3 (Version None)
Quarter: 2007Q2

REPORT INFORMATION
  Report Type: 
  Country: None (occurrence: None)
  Receive Date: 20070425
  Receipt Date: 20070419
  Transmission Date: 20071010
  Serious: Yes (Death)
  Sender: FDA-Public Use
  Company Number: IT-BRACCO-BCM-001221

PATIENT
  Sex: Male

DRUGS (1)
  1. MULTIHANCE [Suspect]
     Route: 042
     Dates: start: 20070411, end: 20070411

REACTIONS (1)
  - CARDIAC ARREST [None]
